FAERS Safety Report 11714564 (Version 2)
Quarter: 2015Q4

REPORT INFORMATION
  Report Type: Not Available
  Country: FI (occurrence: FI)
  Receive Date: 20151109
  Receipt Date: 20151201
  Transmission Date: 20160304
  Serious: Yes (Hospitalization)
  Sender: FDA-Public Use
  Company Number: FI-PURDUE PHARMA-GBR-2015-0031866

PATIENT
  Age: 47 Year

DRUGS (2)
  1. TARGINIQ ER [Suspect]
     Active Substance: NALOXONE HYDROCHLORIDE\OXYCODONE HYDROCHLORIDE
     Indication: NEURALGIA
     Dosage: 20/10 MG, DAILY
     Route: 048
     Dates: start: 2010
  2. LYRICA [Concomitant]
     Active Substance: PREGABALIN
     Dosage: 600 MG, DAILY
     Route: 048
     Dates: start: 2010

REACTIONS (1)
  - Glomerulonephritis membranous [Not Recovered/Not Resolved]

NARRATIVE: CASE EVENT DATE: 20150930
